FAERS Safety Report 12810518 (Version 3)
Quarter: 2017Q4

REPORT INFORMATION
  Report Type: Report from Study
  Country: BR (occurrence: BR)
  Receive Date: 20161005
  Receipt Date: 20171002
  Transmission Date: 20180320
  Serious: Yes (Hospitalization, Other)
  Sender: FDA-Public Use
  Company Number: PHHY2016BR136434

PATIENT
  Sex: Male
  Weight: 52 kg

DRUGS (3)
  1. RITALINA [Suspect]
     Active Substance: METHYLPHENIDATE HYDROCHLORIDE
     Indication: HYPER IGE SYNDROME
  2. RITALINA [Suspect]
     Active Substance: METHYLPHENIDATE HYDROCHLORIDE
     Indication: SUBSTANCE USE DISORDER
     Dosage: 10 MG, QID
     Route: 048
     Dates: start: 201603, end: 201605
  3. RITALIN LA [Suspect]
     Active Substance: METHYLPHENIDATE HYDROCHLORIDE
     Indication: SUBSTANCE USE DISORDER
     Dosage: 4 DF, QD
     Route: 048

REACTIONS (13)
  - Gastrointestinal carcinoma [Unknown]
  - Product use in unapproved indication [Unknown]
  - Condition aggravated [Not Recovered/Not Resolved]
  - Hyper IgE syndrome [Not Recovered/Not Resolved]
  - Opportunistic infection [Unknown]
  - Adrenal disorder [Unknown]
  - Cataract [Unknown]
  - Insomnia [Unknown]
  - Decreased immune responsiveness [Unknown]
  - Rash [Unknown]
  - Somnolence [Unknown]
  - Drug abuse [Not Recovered/Not Resolved]
  - Malaise [Unknown]
